FAERS Safety Report 9366042 (Version 1)
Quarter: 2013Q2

REPORT INFORMATION
  Report Type: Spontaneous
  Country: US (occurrence: US)
  Receive Date: 20130625
  Receipt Date: 20130625
  Transmission Date: 20140414
  Serious: Yes (Other)
  Sender: FDA-Public Use
  Company Number: US-SANOFI-AVENTIS-2013SA063292

PATIENT
  Sex: Female

DRUGS (7)
  1. PLAVIX [Suspect]
     Indication: PRODUCT USED FOR UNKNOWN INDICATION
  2. XARELTO [Concomitant]
  3. ASPIRIN [Concomitant]
  4. CENTRUM SILVER [Concomitant]
  5. COENZYME Q10 [Concomitant]
  6. LORAZEPAM [Concomitant]
  7. ARIMIDEX [Concomitant]

REACTIONS (1)
  - Atrial fibrillation [Not Recovered/Not Resolved]
